FAERS Safety Report 23115096 (Version 1)
Quarter: 2023Q4

REPORT INFORMATION
  Report Type: Spontaneous
  Country: US (occurrence: None)
  Receive Date: 20231026
  Receipt Date: 20231026
  Transmission Date: 20240110
  Serious: Yes (Life-Threatening)
  Sender: FDA-Public Use
  Company Number: None

PATIENT
  Age: 70 Year
  Sex: Male
  Weight: 75.15 kg

DRUGS (5)
  1. LEQVIO [Suspect]
     Active Substance: INCLISIRAN SODIUM
     Indication: Blood cholesterol increased
     Dosage: OTHER QUANTITY : 1 INJECTION(S);?OTHER FREQUENCY : EVERY SIX MONTHS;?
     Route: 058
     Dates: start: 20230913, end: 20230913
  2. Exetimibe [Concomitant]
  3. testosterone cyprionate [Concomitant]
  4. HERBALS\TURMERIC [Concomitant]
     Active Substance: HERBALS\TURMERIC
  5. VITAMINS [Concomitant]
     Active Substance: VITAMINS

REACTIONS (12)
  - Tremor [None]
  - Chills [None]
  - Restlessness [None]
  - Injection site discolouration [None]
  - Peripheral swelling [None]
  - Erythema [None]
  - C-reactive protein increased [None]
  - Blood creatine phosphokinase increased [None]
  - Procalcitonin increased [None]
  - Sensory disturbance [None]
  - Cellulitis gangrenous [None]
  - Eschar [None]

NARRATIVE: CASE EVENT DATE: 20230913
